FAERS Safety Report 8387034-X (Version None)
Quarter: 2012Q2

REPORT INFORMATION
  Report Type: 
  Country: None (occurrence: None)
  Receive Date: 20120525
  Receipt Date: 20120517
  Transmission Date: 20120825
  Serious: Yes (Hospitalization, Other)
  Sender: FDA-Public Use
  Company Number: US-ACTELION-A-US2008-22829

PATIENT

DRUGS (29)
  1. REVATIO [Concomitant]
  2. CALCIUM W/VITAMIN D [Concomitant]
  3. CHLOR-TRIMETON [Concomitant]
  4. FLUTICASONE PROPIONATE [Concomitant]
  5. MULTI-VITAMIN [Concomitant]
  6. OMEPRAZOLE [Concomitant]
  7. SLO-MAG [Concomitant]
  8. ADVAIR DISKUS 100/50 [Concomitant]
  9. WARFARIN SODIUM [Concomitant]
  10. SOTALOL HCL [Concomitant]
  11. POTASSIUM CHLORIDE [Concomitant]
  12. ASPIRIN [Concomitant]
  13. ALBUTEROL [Concomitant]
  14. GLUCOSAMINE W/CHONDROITIN SULFATE [Concomitant]
  15. SPIRONOLACTONE [Concomitant]
  16. TORSEMIDE [Concomitant]
  17. VITAMIN B6 [Concomitant]
  18. OXYGEN [Concomitant]
  19. METROGEL [Concomitant]
  20. TYLENOL ARTHRITIS [Concomitant]
  21. IPRATROPIUM BROMIDE [Concomitant]
  22. BETAPACE [Concomitant]
  23. VIAGRA [Concomitant]
  24. TRACLEER [Suspect]
     Indication: PULMONARY ARTERIAL HYPERTENSION
     Dosage: 125 MG, BID
     Route: 048
     Dates: start: 20070601
  25. COLACE [Concomitant]
  26. NYSTATIN [Concomitant]
  27. SENOKOT [Concomitant]
  28. THYROID TAB [Concomitant]
  29. CLINDAMYCIN [Concomitant]

REACTIONS (18)
  - CHEST PAIN [None]
  - WEIGHT DECREASED [None]
  - CARDIOVERSION [None]
  - FALL [None]
  - LIMB INJURY [None]
  - DEBRIDEMENT [None]
  - RIB FRACTURE [None]
  - SPINAL FRACTURE [None]
  - CARDIAC FAILURE CONGESTIVE [None]
  - ATRIAL FIBRILLATION [None]
  - COSTOCHONDRITIS [None]
  - PERICARDIAL EFFUSION [None]
  - CARDIAC PACEMAKER INSERTION [None]
  - ASPIRATION PLEURAL CAVITY [None]
  - CARDIAC DISORDER [None]
  - CELLULITIS [None]
  - ATRIAL FLUTTER [None]
  - PLEURAL EFFUSION [None]
